FAERS Safety Report 25103501 (Version 1)
Quarter: 2025Q1

REPORT INFORMATION
  Report Type: Spontaneous
  Country: RO (occurrence: RO)
  Receive Date: 20250321
  Receipt Date: 20250321
  Transmission Date: 20250409
  Serious: Yes (Hospitalization, Other)
  Sender: ALCON
  Company Number: None

PATIENT

DRUGS (1)
  1. TROPICAMIDE [Suspect]
     Active Substance: TROPICAMIDE
     Indication: Product used for unknown indication
     Route: 031

REACTIONS (5)
  - Anaphylactic shock [Unknown]
  - Obstructive airways disorder [Unknown]
  - Nasal obstruction [Unknown]
  - Dyspnoea [Unknown]
  - Epistaxis [Unknown]
